FAERS Safety Report 5126847-4 (Version None)
Quarter: 2006Q4

REPORT INFORMATION
  Report Type: 
  Country: None (occurrence: None)
  Receive Date: 20061013
  Receipt Date: 20060929
  Transmission Date: 20070319
  Serious: Yes (Hospitalization)
  Sender: FDA-Public Use
  Company Number: US-AMGEN-US195339

PATIENT
  Sex: Female

DRUGS (10)
  1. ENBREL [Suspect]
     Indication: RHEUMATOID ARTHRITIS
  2. ARAVA [Suspect]
     Indication: RHEUMATOID ARTHRITIS
     Route: 048
     Dates: start: 19990201
  3. PREDNISONE TAB [Suspect]
     Route: 065
     Dates: start: 19900101
  4. PREVACID [Concomitant]
     Route: 065
     Dates: start: 20011217
  5. EFFEXOR [Concomitant]
     Route: 065
     Dates: start: 20031203
  6. PLAVIX [Concomitant]
     Route: 065
     Dates: start: 20040304
  7. SYNTHROID [Concomitant]
     Route: 065
     Dates: start: 20011217
  8. ASPIRIN [Concomitant]
     Route: 065
  9. METHOTREXATE [Concomitant]
     Route: 065
  10. FOLIC ACID [Concomitant]
     Route: 065

REACTIONS (7)
  - BACK PAIN [None]
  - INTERVERTEBRAL DISC DEGENERATION [None]
  - LUNG DISORDER [None]
  - NERVE ROOT COMPRESSION [None]
  - PAIN IN EXTREMITY [None]
  - SPINAL COLUMN STENOSIS [None]
  - TREATMENT NONCOMPLIANCE [None]
